FAERS Safety Report 12467547 (Version 1)
Quarter: 2016Q2

REPORT INFORMATION
  Report Type: Spontaneous
  Country: IT (occurrence: IT)
  Receive Date: 20160615
  Receipt Date: 20160615
  Transmission Date: 20160815
  Serious: Yes (Other)
  Sender: FDA-Public Use
  Company Number: PHHY2016IT079673

PATIENT
  Age: 35 Year
  Sex: Male

DRUGS (7)
  1. KCL [Concomitant]
     Active Substance: POTASSIUM CHLORIDE
     Indication: HYPOKALAEMIA
     Dosage: 1.8 MG, QD (0.6-1.8 MG/DAY)
     Route: 048
  2. SOM230 [Suspect]
     Active Substance: PASIREOTIDE
     Indication: CUSHING^S SYNDROME
     Route: 058
  3. CANRENONE [Concomitant]
     Active Substance: CANRENONE
     Indication: HYPERTENSION
     Dosage: 100 MG, QD
     Route: 065
  4. HYDROCHLOROTHIAZIDE. [Concomitant]
     Active Substance: HYDROCHLOROTHIAZIDE
     Indication: HYPERTENSION
     Dosage: 25 MG, BID
     Route: 065
  5. KCL [Concomitant]
     Active Substance: POTASSIUM CHLORIDE
     Indication: HYPOKALAEMIA
     Dosage: 120 MEQ, QD (80-120)
     Route: 051
  6. KCL [Concomitant]
     Active Substance: POTASSIUM CHLORIDE
     Indication: MINERAL SUPPLEMENTATION
  7. KCL [Concomitant]
     Active Substance: POTASSIUM CHLORIDE
     Indication: MINERAL SUPPLEMENTATION

REACTIONS (4)
  - Diabetes mellitus inadequate control [Recovered/Resolved]
  - Abdominal discomfort [Unknown]
  - Nausea [Unknown]
  - Hypotension [Unknown]
